FAERS Safety Report 14624331 (Version 1)
Quarter: 2018Q1

REPORT INFORMATION
  Report Type: Spontaneous
  Country: US (occurrence: US)
  Receive Date: 20180312
  Receipt Date: 20180312
  Transmission Date: 20180509
  Serious: No
  Sender: FDA-Public Use
  Company Number: US-BIOGEN-2018BI00533917

PATIENT
  Sex: Male

DRUGS (1)
  1. AVONEX [Suspect]
     Active Substance: INTERFERON BETA-1A
     Indication: MULTIPLE SCLEROSIS
     Route: 065
     Dates: start: 20030812, end: 20180221

REACTIONS (6)
  - Muscle atrophy [Unknown]
  - Muscular weakness [Not Recovered/Not Resolved]
  - Scar [Not Recovered/Not Resolved]
  - Injection site pain [Unknown]
  - General physical health deterioration [Unknown]
  - Drug effect decreased [Unknown]
